FAERS Safety Report 7433799-0 (Version None)
Quarter: 2011Q2

REPORT INFORMATION
  Report Type: 
  Country: None (occurrence: None)
  Receive Date: 20110425
  Receipt Date: 20110414
  Transmission Date: 20111010
  Serious: Yes (Other)
  Sender: FDA-Public Use
  Company Number: US-BIOGENIDEC-2011BI005811

PATIENT
  Sex: Male

DRUGS (1)
  1. TYSABRI [Suspect]
     Indication: MULTIPLE SCLEROSIS
     Route: 042
     Dates: start: 20100716

REACTIONS (5)
  - MUSCLE SPASTICITY [None]
  - SURGERY [None]
  - PNEUMONIA [None]
  - URINARY TRACT INFECTION [None]
  - MUSCULOSKELETAL DISORDER [None]
